FAERS Safety Report 9173738 (Version 1)
Quarter: 2013Q1

REPORT INFORMATION
  Report Type: Spontaneous
  Country: US (occurrence: US)
  Receive Date: 20130320
  Receipt Date: 20130320
  Transmission Date: 20140127
  Serious: No
  Sender: FDA-Public Use
  Company Number: US-BAYER-2013-024810

PATIENT
  Sex: Male

DRUGS (1)
  1. CIPRO [Suspect]

REACTIONS (5)
  - Increased upper airway secretion [None]
  - Headache [None]
  - Cough [None]
  - Paranasal sinus hypersecretion [None]
  - Drug ineffective [None]
